FAERS Safety Report 5970003-4 (Version None)
Quarter: 2008Q4

REPORT INFORMATION
  Report Type: 
  Country: None (occurrence: None)
  Receive Date: 20081126
  Receipt Date: 20081114
  Transmission Date: 20090506
  Serious: Yes (Other)
  Sender: FDA-Public Use
  Company Number: AU-PFIZER INC-2008097087

PATIENT
  Age: 49 Year
  Sex: Male

DRUGS (1)
  1. CHAMPIX [Suspect]
     Indication: SMOKING CESSATION THERAPY

REACTIONS (5)
  - ANGER [None]
  - EMOTIONAL DISORDER [None]
  - HALLUCINATION [None]
  - NAUSEA [None]
  - PARANOIA [None]
